FAERS Safety Report 20015620 (Version 1)
Quarter: 2021Q4

REPORT INFORMATION
  Report Type: Spontaneous
  Country: US (occurrence: None)
  Receive Date: 20211101
  Receipt Date: 20211101
  Transmission Date: 20220303
  Serious: Yes (Other)
  Sender: FDA-Public Use
  Company Number: None

PATIENT
  Sex: Female

DRUGS (1)
  1. VICTOZA [Suspect]
     Active Substance: LIRAGLUTIDE

REACTIONS (4)
  - Illness [None]
  - Dysphagia [None]
  - Choking sensation [None]
  - Throat tightness [None]

NARRATIVE: CASE EVENT DATE: 20120105
